FAERS Safety Report 19860179 (Version 1)
Quarter: 2021Q3

REPORT INFORMATION
  Report Type: Spontaneous
  Country: US (occurrence: US)
  Receive Date: 20210920
  Receipt Date: 20210920
  Transmission Date: 20211014
  Serious: No
  Sender: FDA-Public Use
  Company Number: US-AMNEAL PHARMACEUTICALS-2021-AMRX-02650

PATIENT

DRUGS (16)
  1. NORELGESTROMIN/ETHINYL ESTRADIOL TRANSDERMAL SYSTEM [Suspect]
     Active Substance: ETHINYL ESTRADIOL\NORELGESTROMIN
     Route: 062
  2. NORELGESTROMIN/ETHINYL ESTRADIOL TRANSDERMAL SYSTEM [Suspect]
     Active Substance: ETHINYL ESTRADIOL\NORELGESTROMIN
     Route: 062
  3. NORELGESTROMIN/ETHINYL ESTRADIOL TRANSDERMAL SYSTEM [Suspect]
     Active Substance: ETHINYL ESTRADIOL\NORELGESTROMIN
     Route: 062
  4. NORELGESTROMIN/ETHINYL ESTRADIOL TRANSDERMAL SYSTEM [Suspect]
     Active Substance: ETHINYL ESTRADIOL\NORELGESTROMIN
     Route: 062
  5. NORELGESTROMIN/ETHINYL ESTRADIOL TRANSDERMAL SYSTEM [Suspect]
     Active Substance: ETHINYL ESTRADIOL\NORELGESTROMIN
     Route: 062
  6. NORELGESTROMIN/ETHINYL ESTRADIOL TRANSDERMAL SYSTEM [Suspect]
     Active Substance: ETHINYL ESTRADIOL\NORELGESTROMIN
     Route: 062
  7. NORELGESTROMIN/ETHINYL ESTRADIOL TRANSDERMAL SYSTEM [Suspect]
     Active Substance: ETHINYL ESTRADIOL\NORELGESTROMIN
     Route: 062
  8. NORELGESTROMIN/ETHINYL ESTRADIOL TRANSDERMAL SYSTEM [Suspect]
     Active Substance: ETHINYL ESTRADIOL\NORELGESTROMIN
     Route: 062
  9. NORELGESTROMIN/ETHINYL ESTRADIOL TRANSDERMAL SYSTEM [Suspect]
     Active Substance: ETHINYL ESTRADIOL\NORELGESTROMIN
     Route: 062
  10. NORELGESTROMIN/ETHINYL ESTRADIOL TRANSDERMAL SYSTEM [Suspect]
     Active Substance: ETHINYL ESTRADIOL\NORELGESTROMIN
     Indication: PRODUCT USED FOR UNKNOWN INDICATION
     Route: 062
  11. NORELGESTROMIN/ETHINYL ESTRADIOL TRANSDERMAL SYSTEM [Suspect]
     Active Substance: ETHINYL ESTRADIOL\NORELGESTROMIN
     Route: 062
  12. NORELGESTROMIN/ETHINYL ESTRADIOL TRANSDERMAL SYSTEM [Suspect]
     Active Substance: ETHINYL ESTRADIOL\NORELGESTROMIN
     Route: 062
  13. NORELGESTROMIN/ETHINYL ESTRADIOL TRANSDERMAL SYSTEM [Suspect]
     Active Substance: ETHINYL ESTRADIOL\NORELGESTROMIN
     Route: 062
  14. NORELGESTROMIN/ETHINYL ESTRADIOL TRANSDERMAL SYSTEM [Suspect]
     Active Substance: ETHINYL ESTRADIOL\NORELGESTROMIN
     Route: 062
  15. NORELGESTROMIN/ETHINYL ESTRADIOL TRANSDERMAL SYSTEM [Suspect]
     Active Substance: ETHINYL ESTRADIOL\NORELGESTROMIN
     Route: 062
  16. NORELGESTROMIN/ETHINYL ESTRADIOL TRANSDERMAL SYSTEM [Suspect]
     Active Substance: ETHINYL ESTRADIOL\NORELGESTROMIN
     Route: 062

REACTIONS (3)
  - Muscle spasms [Unknown]
  - Product adhesion issue [Unknown]
  - Haemorrhage [Unknown]
